FAERS Safety Report 7422546-4 (Version None)
Quarter: 2011Q2

REPORT INFORMATION
  Report Type: 
  Country: None (occurrence: None)
  Receive Date: 20110408
  Receipt Date: 20110323
  Transmission Date: 20111010
  Serious: Yes (Other)
  Sender: FDA-Public Use
  Company Number: 2011P1005386

PATIENT
  Age: 25 Year
  Sex: Male

DRUGS (3)
  1. OXCARBAZEPINE [Suspect]
     Indication: BRAIN NEOPLASM
     Dosage: 900 MG; QD;
  2. OXCARBAZEPINE [Suspect]
     Indication: EPILEPSY
     Dosage: 900 MG; QD;
  3. UNSPECIFIED STEROID [Concomitant]

REACTIONS (3)
  - ERYTHEMA MULTIFORME [None]
  - IDIOSYNCRATIC DRUG REACTION [None]
  - RADIATION INTERACTION [None]
